FAERS Safety Report 6526065-9 (Version None)
Quarter: 2009Q4

REPORT INFORMATION
  Report Type: 
  Country: None (occurrence: None)
  Receive Date: 20091224
  Receipt Date: 20091209
  Transmission Date: 20100525
  Serious: Yes (Death)
  Sender: FDA-Public Use
  Company Number: 2009003809

PATIENT
  Age: 64 Year
  Sex: Female
  Weight: 76 kg

DRUGS (9)
  1. ERLOTINIB HYDROCHLORIDE [Suspect]
     Indication: LUNG ADENOCARCINOMA
     Dosage: (150 MG,QD),ORAL
     Route: 048
     Dates: start: 20090909, end: 20090924
  2. CYTOTEC [Concomitant]
  3. VALSARTAN [Concomitant]
  4. APRINDINE HYDROCHLORIDE (APRINDINE HYDROCHLORIDE) [Concomitant]
  5. AMLODIPINE BESYLATE [Concomitant]
  6. FOSAMAX [Concomitant]
  7. PRAVASTATIN [Concomitant]
  8. BACTRAMIN (BACTRIM) [Concomitant]
  9. PREDNISOLONE [Concomitant]

REACTIONS (7)
  - COUGH [None]
  - CREPITATIONS [None]
  - DYSPNOEA [None]
  - INTERSTITIAL LUNG DISEASE [None]
  - LUNG ADENOCARCINOMA [None]
  - MALIGNANT NEOPLASM PROGRESSION [None]
  - RALES [None]
